FAERS Safety Report 17868710 (Version 2)
Quarter: 2021Q3

REPORT INFORMATION
  Report Type: Report from Study
  Country: JP (occurrence: JP)
  Receive Date: 20200607
  Receipt Date: 20210913
  Transmission Date: 20211014
  Serious: Yes (Hospitalization, Disabling, Other)
  Sender: FDA-Public Use
  Company Number: JP-RECORDATI RARE DISEASES INC.-JP-R13005-19-00347

PATIENT
  Age: 2 Day
  Sex: Male
  Weight: .64 kg

DRUGS (13)
  1. NEOPROFEN [Suspect]
     Active Substance: IBUPROFEN LYSINE
     Indication: PATENT DUCTUS ARTERIOSUS
     Dosage: 6.5 MILLIGRAM, QD
     Route: 042
     Dates: start: 20191129, end: 20191129
  2. PLEAMIN P [Concomitant]
     Indication: PARENTERAL NUTRITION
     Dosage: UNK UNK, UNK
     Route: 042
     Dates: start: 20191128, end: 20191223
  3. NEOPROFEN [Suspect]
     Active Substance: IBUPROFEN LYSINE
     Dosage: 3.5 MILLIGRAM, QD
     Route: 042
     Dates: start: 20191129, end: 20191129
  4. SOLU?CORTEF [Concomitant]
     Active Substance: HYDROCORTISONE SODIUM SUCCINATE
     Indication: HYPOTENSION
     Dosage: UNK UNK, UNK
     Route: 042
     Dates: start: 20191128, end: 20191128
  5. NEOPROFEN [Suspect]
     Active Substance: IBUPROFEN LYSINE
     Dosage: 3.5 MILLIGRAM, QD
     Route: 042
     Dates: start: 20191130, end: 20191130
  6. LASIX [Concomitant]
     Active Substance: FUROSEMIDE
     Indication: HYPOTENSION
     Dosage: UNK UNK, UNK
     Route: 042
     Dates: start: 20191129, end: 20191223
  7. PHYSIO 35 [Concomitant]
     Active Substance: ELECTROLYTES NOS
     Indication: PARENTERAL NUTRITION
     Dosage: UNK UNK, UNK
     Route: 042
     Dates: start: 20191130, end: 20191223
  8. HUMULIN R [Concomitant]
     Active Substance: INSULIN HUMAN
     Indication: HYPERKALAEMIA
     Dosage: UNK UNK, UNK
     Route: 042
     Dates: start: 20191128, end: 20191129
  9. MEYLON [Concomitant]
     Active Substance: SODIUM BICARBONATE
     Indication: METABOLIC ACIDOSIS
     Dosage: UNK UNK, UNK
     Route: 042
     Dates: start: 20191128, end: 20191130
  10. MILRILA [Concomitant]
     Active Substance: MILRINONE
     Indication: CARDIAC FAILURE
     Dosage: UNK UNK, UNK
     Route: 042
     Dates: start: 20191128, end: 20191202
  11. CALCICOL [Concomitant]
     Active Substance: CALCIUM GLUCONATE
     Indication: HYPOCALCAEMIA
     Dosage: UNK UNK, UNK
     Route: 042
     Dates: start: 20191127, end: 20191209
  12. GLUCOSE [Concomitant]
     Active Substance: DEXTROSE
     Indication: PARENTERAL NUTRITION
     Dosage: UNK UNK, UNK
     Route: 042
     Dates: start: 20191127, end: 20191130
  13. FENTANYL [FENTANYL CITRATE] [Concomitant]
     Active Substance: FENTANYL CITRATE
     Indication: SEDATION
     Dosage: UNK UNK, UNK
     Route: 042
     Dates: start: 20191127, end: 20191203

REACTIONS (4)
  - Drug ineffective [Recovering/Resolving]
  - Renal disorder [Recovered/Resolved]
  - Posthaemorrhagic hydrocephalus [Recovering/Resolving]
  - Haemorrhage intracranial [Recovering/Resolving]

NARRATIVE: CASE EVENT DATE: 20191129
